FAERS Safety Report 6619289-3 (Version None)
Quarter: 2010Q1

REPORT INFORMATION
  Report Type: 
  Country: None (occurrence: None)
  Receive Date: 20100303
  Receipt Date: 20100216
  Transmission Date: 20100710
  Serious: Yes (Hospitalization)
  Sender: FDA-Public Use
  Company Number: 2007001943

PATIENT
  Age: 52 Year
  Sex: Male

DRUGS (5)
  1. ERLOTINIB HYDROCHLORIDE [Suspect]
     Indication: NON-SMALL CELL LUNG CANCER
     Dosage: (150 MG, QD), ORAL
     Route: 048
     Dates: start: 20070726
  2. MAGNESIUM OXIDE (MAGNESIUM OXIDE) [Concomitant]
  3. NEURONTIN [Concomitant]
  4. CIMETIDINE [Concomitant]
  5. OXYCONTIN [Concomitant]

REACTIONS (4)
  - BACK PAIN [None]
  - DISEASE PROGRESSION [None]
  - METASTASES TO LIVER [None]
  - NON-SMALL CELL LUNG CANCER STAGE IV [None]
